FAERS Safety Report 6194420-5 (Version None)
Quarter: 2009Q2

REPORT INFORMATION
  Report Type: 
  Country: None (occurrence: None)
  Receive Date: 20090515
  Receipt Date: 20090429
  Transmission Date: 20091009
  Serious: Yes (Hospitalization)
  Sender: FDA-Public Use
  Company Number: CAN-2009-0000969

PATIENT
  Sex: Female
  Weight: 94.8 kg

DRUGS (4)
  1. DILAUDID [Suspect]
  2. HYDROMORPH CONTIN (HYDROMORPHONE HYDROCHLORIDE) [Suspect]
  3. GABAPENTIN [Suspect]
  4. SUNITINIB MALATE (SUNITINIB MALATE) CAPSULE, HARD [Suspect]
     Indication: CERVIX CARCINOMA

REACTIONS (8)
  - ABASIA [None]
  - ADENOSQUAMOUS CARCINOMA OF THE CERVIX [None]
  - COMPUTERISED TOMOGRAM ABNORMAL [None]
  - DYSPNOEA [None]
  - LUNG DISORDER [None]
  - MALIGNANT NEOPLASM PROGRESSION [None]
  - PELVIC PAIN [None]
  - URINE OUTPUT DECREASED [None]
